FAERS Safety Report 23689298 (Version 1)
Quarter: 2024Q1

REPORT INFORMATION
  Report Type: Report from Study
  Country: CA (occurrence: CA)
  Receive Date: 20240330
  Receipt Date: 20240330
  Transmission Date: 20240410
  Serious: Yes (Other)
  Sender: FDA-Public Use
  Company Number: CA-SAMSUNG BIOEPIS-SB-2023-34681

PATIENT
  Age: 47 Year
  Sex: Male
  Weight: 90 kg

DRUGS (5)
  1. RENFLEXIS [Suspect]
     Active Substance: INFLIXIMAB-ABDA
     Indication: Colitis ulcerative
     Route: 042
     Dates: start: 20230818
  2. RENFLEXIS [Suspect]
     Active Substance: INFLIXIMAB-ABDA
     Route: 042
  3. RENFLEXIS [Suspect]
     Active Substance: INFLIXIMAB-ABDA
     Route: 042
     Dates: start: 20230817
  4. ADVIL [Suspect]
     Active Substance: IBUPROFEN
     Indication: Product used for unknown indication
     Dosage: UNKNOWN
     Route: 065
  5. PREDNISONE [Concomitant]
     Active Substance: PREDNISONE
     Indication: Product used for unknown indication
     Dosage: DECREASING DOSES EACH WEEK
     Route: 065

REACTIONS (12)
  - Colitis ulcerative [Not Recovered/Not Resolved]
  - Condition aggravated [Not Recovered/Not Resolved]
  - COVID-19 [Unknown]
  - Haematochezia [Unknown]
  - Diarrhoea haemorrhagic [Unknown]
  - Frequent bowel movements [Not Recovered/Not Resolved]
  - Abdominal pain [Unknown]
  - Fatigue [Recovering/Resolving]
  - Swelling face [Not Recovered/Not Resolved]
  - Abdominal discomfort [Not Recovered/Not Resolved]
  - Product use issue [Unknown]
  - Product substitution issue [Unknown]

NARRATIVE: CASE EVENT DATE: 20231001
